FAERS Safety Report 8304538-6 (Version None)
Quarter: 2012Q2

REPORT INFORMATION
  Report Type: 
  Country: None (occurrence: None)
  Receive Date: 20120423
  Receipt Date: 20120410
  Transmission Date: 20120825
  Serious: Yes (Hospitalization)
  Sender: FDA-Public Use
  Company Number: CA-GLAXOSMITHKLINE-A0972951A

PATIENT
  Age: 31 Year
  Sex: Female

DRUGS (3)
  1. CELEXA [Suspect]
     Indication: PRODUCT USED FOR UNKNOWN INDICATION
     Dosage: 20MG PER DAY
     Route: 065
  2. LAMICTAL [Suspect]
     Indication: PROPHYLAXIS
     Route: 048
     Dates: start: 20110601
  3. RITALIN [Suspect]
     Indication: PRODUCT USED FOR UNKNOWN INDICATION
     Dosage: 15MG THREE TIMES PER DAY
     Route: 065

REACTIONS (3)
  - ARRHYTHMIA [None]
  - DIZZINESS [None]
  - PALPITATIONS [None]
